FAERS Safety Report 9505927 (Version 1)
Quarter: 2013Q1

REPORT INFORMATION
  Report Type: Spontaneous
  Country: US (occurrence: None)
  Receive Date: 20130212
  Receipt Date: 20130212
  Transmission Date: 20140127
  Serious: Yes (Other)
  Sender: FDA-Public Use
  Company Number: 2012P1066215

PATIENT
  Age: 13 Year
  Sex: Male
  Weight: 58.97 kg

DRUGS (2)
  1. MYORISAN 40 MG [Suspect]
     Indication: ACNE
     Route: 048
     Dates: start: 201210, end: 20121108
  2. ATRALIN [Concomitant]

REACTIONS (1)
  - Lower limb fracture [None]
